FAERS Safety Report 7219445-X (Version None)
Quarter: 2011Q1

REPORT INFORMATION
  Report Type: 
  Country: None (occurrence: None)
  Receive Date: 20110111
  Receipt Date: 20110101
  Transmission Date: 20110831
  Serious: Yes (Other)
  Sender: FDA-Public Use
  Company Number: PHFR2011GB00470

PATIENT
  Sex: Male

DRUGS (6)
  1. OPIOIDS [Suspect]
  2. CLOZARIL [Suspect]
     Indication: SCHIZOPHRENIA
     Dosage: UNK
     Route: 048
     Dates: start: 20100105
  3. CO-CODAMOL [Concomitant]
  4. AMPHETAMINE SULFATE [Suspect]
     Dosage: UNK
  5. METHADONE [Suspect]
  6. CLONAZEPAM [Concomitant]

REACTIONS (3)
  - DRUG ABUSE [None]
  - SOMNOLENCE [None]
  - AGITATION [None]
